FAERS Safety Report 10901481 (Version 4)
Quarter: 2015Q3

REPORT INFORMATION
  Report Type: Spontaneous
  Country: FR (occurrence: FR)
  Receive Date: 20150310
  Receipt Date: 20150720
  Transmission Date: 20151125
  Serious: Yes (Hospitalization, Other)
  Sender: FDA-Public Use
  Company Number: FR-PFIZER INC-2015078388

PATIENT
  Age: 47 Year
  Sex: Male

DRUGS (8)
  1. INEXIUM [Suspect]
     Active Substance: ESOMEPRAZOLE
     Dosage: 20 MG, 1X/DAY
     Route: 048
  2. PREDNISONE. [Concomitant]
     Active Substance: PREDNISONE
     Dosage: 3 DF OF 5 MG, 1X/DAY
     Route: 065
  3. PLAQUENIL [Suspect]
     Active Substance: HYDROXYCHLOROQUINE SULFATE
     Indication: RHEUMATOID ARTHRITIS
     Dosage: 200 MG, 2X/DAY
     Route: 048
     Dates: start: 201407, end: 20150107
  4. FUMAFER [Concomitant]
     Active Substance: FERROUS FUMARATE
     Dosage: 1 DF, DAILY
     Route: 065
  5. VOLTARENE [Concomitant]
     Active Substance: DICLOFENAC SODIUM
     Dosage: 75 MG, 1X/DAY
     Route: 065
  6. METHOTREXATE (METHOTREXATE SODIUM) [Suspect]
     Active Substance: METHOTREXATE SODIUM
     Indication: RHEUMATOID ARTHRITIS
     Dosage: 10 MG, WEEKLY
     Route: 048
     Dates: start: 201407
  7. SALAZOPYRINE [Suspect]
     Active Substance: SULFASALAZINE
     Indication: RHEUMATOID ARTHRITIS
     Dosage: 2 TABLETS OF 500 MG, 2X/DAY
     Route: 048
     Dates: start: 201407, end: 201501
  8. SPECIAFOLDINE [Concomitant]
     Active Substance: FOLIC ACID
     Dosage: 5 MG, 1X/DAY
     Route: 065

REACTIONS (14)
  - Leukopenia [Recovered/Resolved]
  - Neutropenia [Recovered/Resolved]
  - Abdominal sepsis [Recovering/Resolving]
  - Pharyngitis [Unknown]
  - Haematemesis [Recovering/Resolving]
  - Infectious colitis [Recovering/Resolving]
  - Candida infection [Recovering/Resolving]
  - Bone marrow failure [Unknown]
  - Diverticulum intestinal [Unknown]
  - Rectal haemorrhage [Recovering/Resolving]
  - Escherichia infection [Recovering/Resolving]
  - Melaena [Recovering/Resolving]
  - Dysphagia [Recovering/Resolving]
  - Thrombocytopenia [Recovered/Resolved]

NARRATIVE: CASE EVENT DATE: 201501
